FAERS Safety Report 12890175 (Version 1)
Quarter: 2016Q4

REPORT INFORMATION
  Report Type: Spontaneous
  Country: JP (occurrence: JP)
  Receive Date: 20161027
  Receipt Date: 20161027
  Transmission Date: 20170207
  Serious: Yes (Other)
  Sender: FDA-Public Use
  Company Number: JP-PFIZER INC-2016497323

PATIENT
  Age: 41 Year
  Sex: Female

DRUGS (2)
  1. SELARA [Suspect]
     Active Substance: EPLERENONE
     Dosage: 25 MG, 3X/DAY
     Route: 048
  2. SELARA [Suspect]
     Active Substance: EPLERENONE
     Dosage: 50 MG, 2X/DAY
     Route: 048

REACTIONS (3)
  - Food poisoning [Unknown]
  - Malaise [Unknown]
  - Haematochezia [Unknown]
